FAERS Safety Report 12068402 (Version 1)
Quarter: 2016Q1

REPORT INFORMATION
  Report Type: Spontaneous
  Country: US (occurrence: US)
  Receive Date: 20160211
  Receipt Date: 20160211
  Transmission Date: 20160526
  Serious: No
  Sender: FDA-Public Use
  Company Number: US-SMITH AND NEPHEW, INC-2015SMT00619

PATIENT
  Age: 74 Year
  Sex: Female
  Weight: 97.96 kg

DRUGS (8)
  1. VITAMIN C [Concomitant]
     Active Substance: ASCORBIC ACID
     Dosage: 500 MG, 1X/DAY
  2. MULTIVITAMIN [Concomitant]
     Active Substance: VITAMINS
     Dosage: UNK, 1X/DAY
  3. VITAMIN D [Concomitant]
     Active Substance: CHOLECALCIFEROL
     Dosage: 5000 IU, 1X/DAY
  4. GLUCOSAMINE AND CHONDROITIN (TRIPLE STRENGTH) [Concomitant]
     Dosage: UNK, 1X/DAY
  5. METOPROLOL. [Concomitant]
     Active Substance: METOPROLOL
     Dosage: UNK, 1X/DAY
  6. TELMISARTAN. [Concomitant]
     Active Substance: TELMISARTAN
     Dosage: 40 MG, 1X/DAY
  7. BIOTIN [Concomitant]
     Active Substance: BIOTIN
     Dosage: 5000 ?G, 1X/DAY
  8. REGRANEX [Suspect]
     Active Substance: BECAPLERMIN
     Indication: DIABETIC ULCER
     Dosage: UNK, 1X/DAY
     Route: 061
     Dates: start: 20151201

REACTIONS (1)
  - Application site pain [Recovering/Resolving]

NARRATIVE: CASE EVENT DATE: 20151201
